FAERS Safety Report 5449375-5 (Version None)
Quarter: 2007Q3

REPORT INFORMATION
  Report Type: 
  Country: None (occurrence: None)
  Receive Date: 20070911
  Receipt Date: 20070830
  Transmission Date: 20080115
  Serious: Yes (Other)
  Sender: FDA-Public Use
  Company Number: US-PFIZER INC-2007074405

PATIENT
  Sex: Female
  Weight: 61.818 kg

DRUGS (12)
  1. CHANTIX [Suspect]
     Indication: SMOKING CESSATION THERAPY
     Route: 048
  2. NEURONTIN [Concomitant]
  3. ADVAIR DISKUS 100/50 [Concomitant]
     Route: 055
  4. PREVACID [Concomitant]
  5. TRICOR [Concomitant]
  6. LIPITOR [Concomitant]
  7. XANAX [Concomitant]
  8. LEXAPRO [Concomitant]
  9. TRAZODONE HCL [Concomitant]
  10. REQUIP [Concomitant]
  11. TRAMADOL HCL [Concomitant]
  12. MEBUTAN [Concomitant]

REACTIONS (4)
  - CONSTIPATION [None]
  - DEPRESSION [None]
  - INSOMNIA [None]
  - NERVOUSNESS [None]
